FAERS Safety Report 9256131 (Version 1)
Quarter: 2013Q2

REPORT INFORMATION
  Report Type: Spontaneous
  Country: US (occurrence: US)
  Receive Date: 20130425
  Receipt Date: 20130425
  Transmission Date: 20140414
  Serious: No
  Sender: FDA-Public Use
  Company Number: US-AMGEN-USASP2012030504

PATIENT
  Sex: Female

DRUGS (9)
  1. NEULASTA [Suspect]
     Indication: CHEMOTHERAPY
     Dosage: 6 MG, Q3WK
     Route: 058
     Dates: start: 20120220
  2. NEULASTA [Suspect]
     Dosage: 6 MG, Q3WK
     Route: 058
     Dates: start: 20120312
  3. NEULASTA [Suspect]
     Dosage: 6 MG, Q3WK
     Route: 058
     Dates: start: 20120402
  4. NEULASTA [Suspect]
     Dosage: 6 MG, Q3WK
     Route: 058
     Dates: start: 20120423
  5. NEULASTA [Suspect]
     Dosage: 6 MG, UNK
     Dates: start: 200905
  6. CARBOPLATIN [Concomitant]
     Dosage: UNK UNK, Q3WK
     Route: 042
     Dates: start: 20110617, end: 201112
  7. TAXOL [Concomitant]
     Dosage: UNK UNK, Q3WK
     Route: 042
     Dates: start: 20110617, end: 201112
  8. TAXOTERE [Concomitant]
     Dosage: UNK UNK, Q3WK
     Route: 042
     Dates: start: 20120217
  9. ADRIAMYCIN                         /00330901/ [Concomitant]
     Dosage: UNK UNK, Q3WK
     Route: 042
     Dates: start: 20120217

REACTIONS (2)
  - Alopecia [Not Recovered/Not Resolved]
  - Bone pain [Not Recovered/Not Resolved]
